FAERS Safety Report 7878769-3 (Version None)
Quarter: 2011Q4

REPORT INFORMATION
  Report Type: 
  Country: None (occurrence: None)
  Receive Date: 20111028
  Receipt Date: 20111017
  Transmission Date: 20120403
  Serious: Yes (Other)
  Sender: FDA-Public Use
  Company Number: 2011P1009582

PATIENT
  Age: 80 Year
  Sex: Female

DRUGS (8)
  1. KALCIPOS-D [Concomitant]
  2. SIMVASTATIN [Concomitant]
  3. AMLODIPINE (KRVA) [Concomitant]
  4. GABAPENTIN [Concomitant]
  5. NOVOLOG MIX 70/30 [Concomitant]
  6. BEHEPAN [Concomitant]
  7. ESTRIOL (IMI PHARMA) [Concomitant]
  8. FENTANYL [Suspect]
     Indication: ARTHRITIS
     Dosage: 1 PATCH; ;TDER
     Route: 062
     Dates: start: 20101201, end: 20110912

REACTIONS (4)
  - DEPRESSED LEVEL OF CONSCIOUSNESS [None]
  - FATIGUE [None]
  - DECREASED APPETITE [None]
  - CONSTIPATION [None]
